FAERS Safety Report 6508902-7 (Version None)
Quarter: 2009Q4

REPORT INFORMATION
  Report Type: 
  Country: None (occurrence: None)
  Receive Date: 20091221
  Receipt Date: 20090916
  Transmission Date: 20100525
  Serious: No
  Sender: FDA-Public Use
  Company Number: US-ASTRAZENECA-2009SE13541

PATIENT
  Sex: Male
  Weight: 108.9 kg

DRUGS (1)
  1. CRESTOR [Suspect]
     Route: 048

REACTIONS (4)
  - ASTHENIA [None]
  - INSOMNIA [None]
  - LETHARGY [None]
  - MYALGIA [None]
